FAERS Safety Report 13937730 (Version 1)
Quarter: 2017Q3

REPORT INFORMATION
  Report Type: Spontaneous
  Country: US (occurrence: US)
  Receive Date: 20170905
  Receipt Date: 20170905
  Transmission Date: 20171127
  Serious: No
  Sender: FDA-Public Use
  Company Number: US-BAYER-2017-164651

PATIENT
  Sex: Female

DRUGS (2)
  1. MIRALAX [Suspect]
     Active Substance: POLYETHYLENE GLYCOL 3350
     Dosage: 3/4 CAPFUL
     Route: 065
  2. IRON W/VITAMINS NOS [Concomitant]
     Active Substance: IRON\VITAMINS
     Dosage: 2 DF, QD

REACTIONS (1)
  - Product use issue [Unknown]
